FAERS Safety Report 20547819 (Version 2)
Quarter: 2022Q1

REPORT INFORMATION
  Report Type: Spontaneous
  Country: FR (occurrence: FR)
  Receive Date: 20220303
  Receipt Date: 20220317
  Transmission Date: 20220423
  Serious: Yes (Hospitalization)
  Sender: FDA-Public Use
  Company Number: FR-TEVA-2022-FR-2011617

PATIENT
  Age: 34 Year
  Sex: Female

DRUGS (3)
  1. PAROXETINE [Suspect]
     Active Substance: PAROXETINE
     Indication: Depression
     Route: 065
  2. ESKETAMINE [Suspect]
     Active Substance: ESKETAMINE
     Indication: Depression
     Dosage: FOR 4 WEEKS
     Route: 055
  3. ESKETAMINE [Suspect]
     Active Substance: ESKETAMINE
     Dosage: EVERY 2 WEEKS
     Route: 055

REACTIONS (1)
  - Suicide attempt [Unknown]
